FAERS Safety Report 7972130-9 (Version None)
Quarter: 2011Q4

REPORT INFORMATION
  Report Type: 
  Country: None (occurrence: None)
  Receive Date: 20111212
  Receipt Date: 20111201
  Transmission Date: 20120403
  Serious: Yes (Hospitalization)
  Sender: FDA-Public Use
  Company Number: US-ASTRAZENECA-2011SE73717

PATIENT
  Age: 58 Year
  Sex: Female

DRUGS (4)
  1. ALBUTEROL [Concomitant]
  2. SEROQUEL XR [Suspect]
     Indication: BIPOLAR DISORDER
     Route: 048
  3. WELLBUTRIN [Concomitant]
  4. ADVAIR DISKUS 100/50 [Concomitant]

REACTIONS (1)
  - INJURY [None]
